FAERS Safety Report 6552856-4 (Version None)
Quarter: 2010Q1

REPORT INFORMATION
  Report Type: 
  Country: None (occurrence: None)
  Receive Date: 20100122
  Receipt Date: 20100108
  Transmission Date: 20100710
  Serious: Yes (Life-Threatening)
  Sender: FDA-Public Use
  Company Number: A-CH2009-32780

PATIENT
  Age: 42 Year
  Sex: Male

DRUGS (5)
  1. TRACLEER [Suspect]
     Indication: PULMONARY ARTERIAL HYPERTENSION
     Dosage: 125 MG, BID, ORAL
     Route: 048
  2. FUROSEMIDE [Suspect]
     Dosage: 125 MG, BID
  3. WARFARIN SODIUM [Suspect]
  4. SILDENAFIL CITRATE [Suspect]
     Dosage: 20 MG, TID
  5. SPIRONOLACTONE [Suspect]
     Dosage: 50 MG, OD

REACTIONS (4)
  - EJECTION FRACTION DECREASED [None]
  - HAEMODYNAMIC INSTABILITY [None]
  - PRESYNCOPE [None]
  - VENTRICULAR TACHYCARDIA [None]
